FAERS Safety Report 10303081 (Version 1)
Quarter: 2014Q3

REPORT INFORMATION
  Report Type: Spontaneous
  Country: US (occurrence: None)
  Receive Date: 20140710
  Receipt Date: 20140710
  Transmission Date: 20150326
  Serious: Yes (Death)
  Sender: FDA-Public Use
  Company Number: US-MDCO-14-00159

PATIENT
  Age: 53 Year
  Sex: Male
  Weight: 64.8 kg

DRUGS (4)
  1. HEPARIN (HEPARIN) (HEPARIN) [Concomitant]
  2. ANGIOMAX [Suspect]
     Active Substance: BIVALIRUDIN
     Indication: CORONARY ANGIOPLASTY
     Dosage: AT 10:33 H
     Route: 040
     Dates: start: 20140102, end: 20140102
  3. LIDOCAINE (LIDOCAINE) [Concomitant]
     Active Substance: LIDOCAINE
  4. AMIODAPRONE (AMIODARONE) (AMIODARONE) [Concomitant]

REACTIONS (1)
  - Death [None]

NARRATIVE: CASE EVENT DATE: 20140102
